FAERS Safety Report 10926640 (Version 2)
Quarter: 2015Q2

REPORT INFORMATION
  Report Type: Spontaneous
  Country: JP (occurrence: JP)
  Receive Date: 20150318
  Receipt Date: 20150406
  Transmission Date: 20150821
  Serious: Yes (Hospitalization)
  Sender: FDA-Public Use
  Company Number: JP-SA-2015SA032047

PATIENT
  Age: 14 Day
  Sex: Female
  Weight: 3.59 kg

DRUGS (3)
  1. AMPICILLIN [Suspect]
     Active Substance: AMPICILLIN
     Indication: SEPSIS NEONATAL
     Route: 042
  2. CEFOTAXIME SODIUM [Suspect]
     Active Substance: CEFOTAXIME SODIUM
     Indication: SEPSIS NEONATAL
     Route: 065
  3. VITAMIN K [Concomitant]
     Active Substance: PHYTONADIONE
     Route: 048

REACTIONS (13)
  - Aspartate aminotransferase increased [Recovering/Resolving]
  - Muscle enzyme increased [Recovering/Resolving]
  - Blood creatine phosphokinase MB increased [Recovering/Resolving]
  - Fibrin degradation products increased [Recovering/Resolving]
  - Activated partial thromboplastin time prolonged [Recovering/Resolving]
  - Oliguria [Unknown]
  - Abdominal distension [Recovering/Resolving]
  - Blood creatine phosphokinase increased [Recovering/Resolving]
  - Matrix metalloproteinase-3 increased [Recovering/Resolving]
  - Hepatic enzyme increased [Recovering/Resolving]
  - Blood lactate dehydrogenase increased [Recovering/Resolving]
  - Blood fibrinogen decreased [Recovering/Resolving]
  - Alanine aminotransferase increased [Recovering/Resolving]
